FAERS Safety Report 13902247 (Version 1)
Quarter: 2017Q3

REPORT INFORMATION
  Report Type: Spontaneous
  Country: US (occurrence: US)
  Receive Date: 20170824
  Receipt Date: 20170824
  Transmission Date: 20171127
  Serious: No
  Sender: FDA-Public Use
  Company Number: US-ROCHE-1131319

PATIENT
  Sex: Female

DRUGS (5)
  1. HERCEPTIN [Suspect]
     Active Substance: TRASTUZUMAB
     Indication: BREAST CANCER
     Route: 050
     Dates: start: 20001110
  2. DECADRON [Concomitant]
     Active Substance: DEXAMETHASONE
     Dosage: 25/10
     Route: 050
  3. ANZEMET [Concomitant]
     Active Substance: DOLASETRON MESYLATE
     Route: 050
  4. NAVELBINE [Concomitant]
     Active Substance: VINORELBINE TARTRATE
     Route: 050
  5. BENADRYL [Concomitant]
     Active Substance: DIPHENHYDRAMINE HYDROCHLORIDE
     Dosage: 25/10
     Route: 050

REACTIONS (2)
  - Cough [Unknown]
  - Fatigue [Unknown]
